FAERS Safety Report 5107964-1 (Version None)
Quarter: 2006Q3

REPORT INFORMATION
  Report Type: 
  Country: None (occurrence: None)
  Receive Date: 20060919
  Receipt Date: 20060907
  Transmission Date: 20061208
  Serious: Yes (Other)
  Sender: FDA-Public Use
  Company Number: PHEH2006US11514

PATIENT
  Age: 77 Year
  Sex: Male

DRUGS (3)
  1. ZOMETA [Suspect]
     Indication: METASTASES TO BONE
     Dosage: 4 MG MONTHLY
     Dates: start: 20040801, end: 20060801
  2. TAXOTERE [Concomitant]
     Indication: PROSTATE CANCER METASTATIC
     Dosage: UNK, QW
     Dates: start: 20051201
  3. DECADRON [Concomitant]
     Indication: PROSTATE CANCER METASTATIC
     Dosage: UNK, QW
     Dates: start: 20051201

REACTIONS (1)
  - OSTEONECROSIS [None]
